FAERS Safety Report 23851377 (Version 3)
Quarter: 2024Q4

REPORT INFORMATION
  Report Type: Report from Study
  Country: AU (occurrence: AU)
  Receive Date: 20240514
  Receipt Date: 20241001
  Transmission Date: 20250115
  Serious: Yes (Hospitalization, Other)
  Sender: NOVARTIS
  Company Number: AU-002147023-NVSC2024AU100470

PATIENT
  Sex: Female

DRUGS (1)
  1. KESIMPTA [Suspect]
     Active Substance: OFATUMUMAB
     Indication: Relapsing-remitting multiple sclerosis
     Dosage: 20 MG, QMO
     Route: 058
     Dates: start: 20230830

REACTIONS (5)
  - Staphylococcal infection [Not Recovered/Not Resolved]
  - Localised infection [Unknown]
  - Lower respiratory tract infection [Unknown]
  - Hordeolum [Unknown]
  - Nasopharyngitis [Unknown]
